FAERS Safety Report 6782619-6 (Version None)
Quarter: 2010Q2

REPORT INFORMATION
  Report Type: 
  Country: None (occurrence: None)
  Receive Date: 20100621
  Receipt Date: 20100608
  Transmission Date: 20101027
  Serious: Yes (Hospitalization, Other)
  Sender: FDA-Public Use
  Company Number: NL-BAYER-200923162GPV

PATIENT
  Age: 73 Year
  Sex: Female

DRUGS (6)
  1. NEXAVAR [Suspect]
     Indication: METASTATIC RENAL CELL CARCINOMA
     Dosage: UNIT DOSE: 200 MG
     Route: 048
     Dates: start: 20090623
  2. NEXAVAR [Suspect]
     Dosage: TOTAL DAILY DOSE: 800 MG  UNIT DOSE: 200 MG
     Route: 048
     Dates: start: 20090524, end: 20090623
  3. COZAAR [Concomitant]
     Indication: HYPERTENSION
     Dosage: TOTAL DAILY DOSE: 100 MG
     Route: 048
  4. DOMPERIDON [Concomitant]
     Indication: NAUSEA
     Dosage: TOTAL DAILY DOSE: 30 MG
     Route: 048
  5. REQUIP [Concomitant]
     Indication: PARKINSON'S DISEASE
     Dosage: TOTAL DAILY DOSE: 8 MG
     Route: 048
  6. PROPRANOLOL [Concomitant]
     Indication: HYPERTENSION
     Dosage: TOTAL DAILY DOSE: 80 MG
     Route: 048

REACTIONS (13)
  - ABDOMINAL PAIN [None]
  - ALOPECIA [None]
  - CONSTIPATION [None]
  - DIARRHOEA [None]
  - EAR DISCOMFORT [None]
  - HAEMOPTYSIS [None]
  - HYPERTENSION [None]
  - NAUSEA [None]
  - OEDEMA PERIPHERAL [None]
  - PALMAR-PLANTAR ERYTHRODYSAESTHESIA SYNDROME [None]
  - PNEUMOTHORAX [None]
  - STOMATITIS [None]
  - VOMITING [None]
